FAERS Safety Report 9688521 (Version 1)
Quarter: 2013Q4

REPORT INFORMATION
  Report Type: Spontaneous
  Country: US (occurrence: None)
  Receive Date: 20131112
  Receipt Date: 20131112
  Transmission Date: 20140711
  Serious: Yes (Other)
  Sender: FDA-Public Use
  Company Number: FK201304862

PATIENT
  Age: 69 Year
  Sex: Male

DRUGS (5)
  1. AMIODARONE HCL [Suspect]
     Indication: PRODUCT USED FOR UNKNOWN INDICATION
     Route: 048
  2. AMIODARONE HCL [Suspect]
     Indication: VENTRICULAR TACHYCARDIA
     Route: 048
  3. SERTRALINE (SETRALINE) [Concomitant]
  4. ESZOPICLONE (ESZOPICLONE) [Concomitant]
  5. ROPINIROLE (ROPINIROLE) [Concomitant]

REACTIONS (1)
  - Torsade de pointes [None]
